FAERS Safety Report 10927920 (Version 1)
Quarter: 2015Q1

REPORT INFORMATION
  Report Type: Spontaneous
  Country: GB (occurrence: GB)
  Receive Date: 20150319
  Receipt Date: 20150319
  Transmission Date: 20150721
  Serious: Yes (Other)
  Sender: FDA-Public Use
  Company Number: GB-DRREDDYS-GER/UKI/15/0046705

PATIENT
  Age: 68 Year
  Sex: Female
  Weight: 77.11 kg

DRUGS (3)
  1. QUININE SULPHATE [Concomitant]
     Active Substance: QUININE SULFATE
     Indication: PRODUCT USED FOR UNKNOWN INDICATION
  2. CETIRIZINE [Suspect]
     Active Substance: CETIRIZINE HYDROCHLORIDE
     Indication: RASH
     Route: 048
     Dates: start: 20150304
  3. LANSOPRAZOLE. [Concomitant]
     Active Substance: LANSOPRAZOLE
     Indication: PRODUCT USED FOR UNKNOWN INDICATION

REACTIONS (4)
  - Lethargy [Unknown]
  - Urinary incontinence [Recovered/Resolved]
  - Somnolence [Recovered/Resolved]
  - Bradyphrenia [Unknown]

NARRATIVE: CASE EVENT DATE: 20150304
